FAERS Safety Report 23498496 (Version 2)
Quarter: 2024Q1

REPORT INFORMATION
  Report Type: Spontaneous
  Country: JP (occurrence: JP)
  Receive Date: 20240208
  Receipt Date: 20240302
  Transmission Date: 20240410
  Serious: Yes (Other)
  Sender: FDA-Public Use
  Company Number: JP-UCBJ-CD202400957UCBPHAPROD

PATIENT

DRUGS (1)
  1. RYSTIGGO [Suspect]
     Active Substance: ROZANOLIXIZUMAB-NOLI
     Indication: Myasthenia gravis
     Dosage: UNK
     Route: 058
     Dates: start: 20240118

REACTIONS (5)
  - Meningitis [Recovered/Resolved]
  - Malaise [Recovered/Resolved]
  - Salivary hypersecretion [Recovered/Resolved]
  - Sleep disorder due to general medical condition, insomnia type [Unknown]
  - Drug ineffective [Unknown]

NARRATIVE: CASE EVENT DATE: 20240101
